FAERS Safety Report 4876243-X (Version None)
Quarter: 2006Q1

REPORT INFORMATION
  Report Type: 
  Country: None (occurrence: None)
  Receive Date: 20060110
  Receipt Date: 20060103
  Transmission Date: 20060701
  Serious: Yes (Other)
  Sender: FDA-Public Use
  Company Number: SE-JNJFOC-20060100432

PATIENT
  Age: 68 Year
  Sex: Female

DRUGS (10)
  1. INFLIXIMAB [Suspect]
     Route: 042
  2. INFLIXIMAB [Suspect]
     Indication: RHEUMATOID ARTHRITIS
     Route: 042
  3. METHOTREXATE [Concomitant]
     Route: 065
  4. KREDEX [Concomitant]
     Route: 065
  5. PLENDIL [Concomitant]
     Route: 065
  6. METFORMIN [Concomitant]
     Route: 065
  7. SIMVASTATIN [Concomitant]
     Route: 065
  8. LEVAXIN [Concomitant]
     Route: 065
  9. FOLACIN [Concomitant]
     Route: 065
  10. FOLACIN [Concomitant]
     Route: 065

REACTIONS (2)
  - ACUTE MYELOID LEUKAEMIA [None]
  - ADVERSE EVENT [None]
